FAERS Safety Report 4393199-7 (Version None)
Quarter: 2004Q3

REPORT INFORMATION
  Report Type: 
  Country: None (occurrence: None)
  Receive Date: 20040702
  Receipt Date: 20040624
  Transmission Date: 20050211
  Serious: Yes (Hospitalization)
  Sender: FDA-Public Use
  Company Number: FR-JNJFOC-20040607194

PATIENT
  Age: 80 Year
  Sex: Male

DRUGS (4)
  1. RISPERDAL [Suspect]
     Indication: ABNORMAL BEHAVIOUR
     Dosage: 1 MG, IN 1 DAY, ORAL
     Route: 048
     Dates: start: 20040525, end: 20040528
  2. TERCIAN (CYAMEMAZINE) [Concomitant]
     Indication: ABNORMAL BEHAVIOUR
     Dosage: 2 DOSE (S), IN 1 DAY, ORAL
     Route: 048
     Dates: start: 20040525, end: 20040526
  3. MIRTAZAPINE [Suspect]
     Indication: ABNORMAL BEHAVIOUR
     Dosage: 15 MG, IN 1 DAY, ORAL
     Route: 048
     Dates: start: 20040525, end: 20040528
  4. BACTRIM [Concomitant]

REACTIONS (4)
  - C-REACTIVE PROTEIN INCREASED [None]
  - DRUG INTERACTION [None]
  - LEUKOPENIA [None]
  - NEUTROPENIA [None]
